FAERS Safety Report 7639970-7 (Version None)
Quarter: 2011Q3

REPORT INFORMATION
  Report Type: 
  Country: None (occurrence: None)
  Receive Date: 20110727
  Receipt Date: 20110715
  Transmission Date: 20111222
  Serious: No
  Sender: FDA-Public Use
  Company Number: BE-ROCHE-765313

PATIENT
  Sex: Female
  Weight: 92 kg

DRUGS (6)
  1. TOCILIZUMAB [Suspect]
     Indication: RHEUMATOID ARTHRITIS
     Route: 042
     Dates: start: 20110214
  2. METHOTREXATE [Suspect]
     Indication: RHEUMATOID ARTHRITIS
     Route: 048
     Dates: end: 20110315
  3. CELEBREX [Suspect]
     Indication: RHEUMATOID ARTHRITIS
     Route: 048
  4. MEDROL [Concomitant]
     Indication: RHEUMATOID ARTHRITIS
     Route: 048
  5. ARAVA [Suspect]
     Indication: RHEUMATOID ARTHRITIS
     Route: 048
  6. LISINOPRIL [Concomitant]
     Dates: start: 20110207

REACTIONS (1)
  - CYTOLYTIC HEPATITIS [None]
